FAERS Safety Report 7488098-8 (Version None)
Quarter: 2011Q2

REPORT INFORMATION
  Report Type: 
  Country: None (occurrence: None)
  Receive Date: 20110518
  Receipt Date: 20110511
  Transmission Date: 20111010
  Serious: Yes (Hospitalization)
  Sender: FDA-Public Use
  Company Number: JP-ROCHE-742024

PATIENT
  Age: 70 Year

DRUGS (2)
  1. TS-1 [Suspect]
     Indication: LARGE INTESTINE CARCINOMA
     Route: 048
  2. AVASTIN [Suspect]
     Indication: LARGE INTESTINE CARCINOMA
     Route: 041

REACTIONS (1)
  - HEPATIC CIRRHOSIS [None]
